FAERS Safety Report 7211160-1 (Version None)
Quarter: 2011Q1

REPORT INFORMATION
  Report Type: 
  Country: None (occurrence: None)
  Receive Date: 20110105
  Receipt Date: 20101206
  Transmission Date: 20110831
  Serious: Yes (Other)
  Sender: FDA-Public Use
  Company Number: US-BAYER-201026843NA

PATIENT
  Sex: Female
  Weight: 72.727 kg

DRUGS (10)
  1. TRIAMTERENE [Concomitant]
     Indication: HYPERTENSION
  2. WELLBUTRIN [Concomitant]
     Indication: DEPRESSION
  3. NEXIUM [Concomitant]
  4. LISINOPRIL [Concomitant]
     Indication: HYPERTENSION
  5. DIETARY SUPPLEMENTS [Concomitant]
  6. YAZ [Suspect]
     Indication: MENSTRUAL CYCLE MANAGEMENT
     Route: 048
     Dates: start: 20041201
  7. YASMIN [Suspect]
     Indication: MENSTRUAL CYCLE MANAGEMENT
     Route: 048
     Dates: start: 20041201, end: 20080915
  8. CENTRUM [Concomitant]
  9. DIETARY SUPPLEMENTS [Concomitant]
  10. MULTI-VITAMINS [Concomitant]

REACTIONS (6)
  - GASTROOESOPHAGEAL REFLUX DISEASE [None]
  - BACK PAIN [None]
  - GALLBLADDER DISORDER [None]
  - VOMITING [None]
  - CHOLELITHIASIS [None]
  - ABDOMINAL PAIN UPPER [None]
